FAERS Safety Report 8396877-8 (Version None)
Quarter: 2012Q1

REPORT INFORMATION
  Report Type: 
  Country: None (occurrence: None)
  Receive Date: 20120323
  Receipt Date: 20110314
  Transmission Date: 20120608
  Serious: Yes (Other)
  Sender: FDA-Public Use
  Company Number: 163-21880-11031968

PATIENT
  Age: 51 Year
  Sex: Female
  Weight: 100 kg

DRUGS (3)
  1. REVLIMID [Suspect]
     Indication: MULTIPLE MYELOMA
     Dosage: 25 MG, 1 IN 1 D, PO   15 MG, DAILY FOR 21 DAYS THEN OFF 7 DAYS, PO   10 MG, DAILY X 21, PO
     Route: 048
     Dates: start: 20081101, end: 20090101
  2. REVLIMID [Suspect]
     Indication: MULTIPLE MYELOMA
     Dosage: 25 MG, 1 IN 1 D, PO   15 MG, DAILY FOR 21 DAYS THEN OFF 7 DAYS, PO   10 MG, DAILY X 21, PO
     Route: 048
     Dates: start: 20090901, end: 20110101
  3. REVLIMID [Suspect]
     Indication: MULTIPLE MYELOMA
     Dosage: 25 MG, 1 IN 1 D, PO   15 MG, DAILY FOR 21 DAYS THEN OFF 7 DAYS, PO   10 MG, DAILY X 21, PO
     Route: 048
     Dates: start: 20110301

REACTIONS (1)
  - NEUTROPENIA [None]
